FAERS Safety Report 5640769-1 (Version None)
Quarter: 2008Q1

REPORT INFORMATION
  Report Type: 
  Country: None (occurrence: None)
  Receive Date: 20080227
  Receipt Date: 20080218
  Transmission Date: 20080703
  Serious: Yes (Hospitalization)
  Sender: FDA-Public Use
  Company Number: US-JNJFOC-20080204614

PATIENT
  Sex: Male
  Weight: 79.38 kg

DRUGS (4)
  1. FENTANYL TRANSDERMAL SYSTEM [Suspect]
     Indication: PAIN
     Route: 062
  2. CELEXA [Concomitant]
     Indication: DEPRESSION
     Route: 048
  3. XANAX [Concomitant]
     Indication: ANXIETY
     Route: 048
  4. BLOOD PRESSURE MEDICATION [Concomitant]
     Indication: HYPERTENSION
     Route: 065

REACTIONS (8)
  - ABASIA [None]
  - ACCIDENTAL EXPOSURE [None]
  - APHASIA [None]
  - CONFUSIONAL STATE [None]
  - DEVICE LEAKAGE [None]
  - DYSPNOEA [None]
  - FEELING ABNORMAL [None]
  - WRONG TECHNIQUE IN DRUG USAGE PROCESS [None]
